FAERS Safety Report 7255828-X (Version None)
Quarter: 2011Q1

REPORT INFORMATION
  Report Type: 
  Country: None (occurrence: None)
  Receive Date: 20110129
  Receipt Date: 20100520
  Transmission Date: 20110831
  Serious: No
  Sender: FDA-Public Use
  Company Number: US-ABBOTT-10P-163-0645972-00

PATIENT
  Sex: Female
  Weight: 84.444 kg

DRUGS (7)
  1. AMBIEN [Concomitant]
     Indication: INSOMNIA
     Dosage: 1/2 TAB AS NEEDED
     Route: 048
  2. MULTIVITAMIN [Concomitant]
     Indication: VITAMIN SUPPLEMENTATION
  3. METOPROLOL [Concomitant]
     Indication: HYPERTENSION
     Route: 048
  4. HUMIRA [Suspect]
     Indication: PSORIASIS
     Route: 058
     Dates: start: 20090101
  5. POTASSIUM CHLORIDE [Concomitant]
     Indication: MEDICAL DIET
     Route: 048
  6. ADVIL [Concomitant]
     Indication: PRODUCT USED FOR UNKNOWN INDICATION
     Dosage: 3 LIQUID TABS AS NEEDED
  7. LASIX [Concomitant]
     Indication: DIURETIC THERAPY
     Route: 048

REACTIONS (2)
  - PSORIASIS [None]
  - NAUSEA [None]
